FAERS Safety Report 5644486-3 (Version None)
Quarter: 2008Q1

REPORT INFORMATION
  Report Type: 
  Country: None (occurrence: None)
  Receive Date: 20080229
  Receipt Date: 20070117
  Transmission Date: 20080703
  Serious: No
  Sender: FDA-Public Use
  Company Number: A0636167A

PATIENT
  Age: 56 Year
  Sex: Female

DRUGS (1)
  1. VALTREX [Suspect]
     Indication: GENITAL HERPES
     Route: 048

REACTIONS (3)
  - PAIN IN EXTREMITY [None]
  - PAIN OF SKIN [None]
  - SKIN WARM [None]
